FAERS Safety Report 4797530-X (Version None)
Quarter: 2005Q3

REPORT INFORMATION
  Report Type: 
  Country: None (occurrence: None)
  Receive Date: 20050929
  Receipt Date: 20050707
  Transmission Date: 20060218
  Serious: No
  Sender: FDA-Public Use
  Company Number: 05P-163-0305008

PATIENT
  Age: 52 Year
  Sex: Male
  Weight: 100 kg

DRUGS (7)
  1. HUMIRA [Suspect]
     Indication: RHEUMATOID ARTHRITIS
     Dosage: 40 MG, 1 IN 2 WK, SUBCUTANEOUS
     Route: 058
     Dates: start: 20041101
  2. METHOTREXATE [Concomitant]
  3. PREDNISONE [Concomitant]
  4. LEFLUNOMIDE [Concomitant]
  5. ALENDROANTE SODIUM [Concomitant]
  6. FOLIC ACID [Concomitant]
  7. ACETAMINOPHEN W/ CODEINE [Concomitant]

REACTIONS (1)
  - INJECTION SITE IRRITATION [None]
